FAERS Safety Report 17575470 (Version 1)
Quarter: 2020Q1

REPORT INFORMATION
  Report Type: Spontaneous
  Country: US (occurrence: US)
  Receive Date: 20200324
  Receipt Date: 20200324
  Transmission Date: 20200409
  Serious: Yes (Hospitalization, Other)
  Sender: FDA-Public Use
  Company Number: NVSC2020US081824

PATIENT

DRUGS (1)
  1. TREPROSTINIL. [Suspect]
     Active Substance: TREPROSTINIL
     Indication: PULMONARY HYPERTENSION
     Dosage: UNK (50 MG IN 20 ML)
     Route: 042

REACTIONS (4)
  - Pulmonary hypertension [Recovered/Resolved]
  - Respiratory rate increased [Recovered/Resolved]
  - General physical health deterioration [Recovered/Resolved]
  - Product substitution issue [Recovered/Resolved]
